FAERS Safety Report 18171760 (Version 5)
Quarter: 2021Q1

REPORT INFORMATION
  Report Type: Report from Study
  Country: US (occurrence: US)
  Receive Date: 20200819
  Receipt Date: 20210318
  Transmission Date: 20210419
  Serious: Yes (Other)
  Sender: FDA-Public Use
  Company Number: US-AEGERION PHARMACEUTICAL, INC-AEGR004754

PATIENT
  Age: 64 Year
  Sex: Female
  Weight: 93.88 kg

DRUGS (12)
  1. JUXTAPID [Suspect]
     Active Substance: LOMITAPIDE MESYLATE
     Indication: TYPE IIA HYPERLIPIDAEMIA
     Dosage: 5 MILLIGRAM, QD
     Route: 048
     Dates: start: 20161110, end: 20170315
  2. RANITIDINE HYDROCHLORIDE. [Concomitant]
     Active Substance: RANITIDINE HYDROCHLORIDE
     Indication: GASTROOESOPHAGEAL REFLUX DISEASE
     Dosage: 150 MILLIGRAM, BID
     Dates: start: 20151119
  3. METOPROLOL. [Concomitant]
     Active Substance: METOPROLOL
     Indication: SUPRAVENTRICULAR TACHYCARDIA
     Dosage: 50 MILLIGRAM, BID
     Route: 048
     Dates: start: 20190814
  4. TORSEMIDE. [Concomitant]
     Active Substance: TORSEMIDE
     Indication: DYSPNOEA
     Dosage: 10 MILLIGRAM, QD
     Route: 048
     Dates: start: 20190410
  5. JUXTAPID [Suspect]
     Active Substance: LOMITAPIDE MESYLATE
     Dosage: 5 MILLIGRAM, QD
     Route: 048
     Dates: start: 20191115, end: 20210119
  6. VITAMIN D3 [Concomitant]
     Active Substance: CHOLECALCIFEROL
     Indication: SUPPLEMENTATION THERAPY
     Dosage: 1 DOSAGE FORM ONCE WEEKLY
     Route: 048
     Dates: start: 20170605
  7. ATENOLOL. [Concomitant]
     Active Substance: ATENOLOL
     Indication: HYPERTENSION
     Dosage: 25 MILLIGRAM, QD
     Route: 048
     Dates: start: 20160218
  8. SEROQUEL [Concomitant]
     Active Substance: QUETIAPINE FUMARATE
     Indication: DEPRESSION
     Dosage: 25 MILLIGRAM, QD
     Route: 048
     Dates: start: 2017
  9. ZOLOFT [Concomitant]
     Active Substance: SERTRALINE HYDROCHLORIDE
     Indication: DEPRESSION
     Dosage: 50 MILLIGRAM, QD
     Route: 048
     Dates: start: 2017
  10. LISINOPRIL. [Concomitant]
     Active Substance: LISINOPRIL
     Indication: HYPERTENSION
     Dosage: 10 MILLIGRAM, QD
     Route: 048
     Dates: start: 20100618
  11. CHOLESTYRAMINE. [Concomitant]
     Active Substance: CHOLESTYRAMINE
     Indication: HYPERCHOLESTEROLAEMIA
     Dosage: 4 GRAM, QD
     Route: 048
     Dates: start: 201609
  12. METFORMIN [Concomitant]
     Active Substance: METFORMIN HYDROCHLORIDE
     Indication: DIABETES MELLITUS
     Dosage: 750 MILLIGRAM, QD
     Route: 048
     Dates: start: 20090715

REACTIONS (12)
  - Chest pain [Unknown]
  - Cough [Unknown]
  - Therapy interrupted [Unknown]
  - Abdominal discomfort [Unknown]
  - Product dose omission issue [Unknown]
  - Feeling abnormal [Unknown]
  - Diet noncompliance [Unknown]
  - Dyspnoea [Unknown]
  - Spinal fracture [Unknown]
  - Diarrhoea [Recovered/Resolved]
  - Adverse event [Unknown]
  - Treatment noncompliance [Unknown]

NARRATIVE: CASE EVENT DATE: 2020
